FAERS Safety Report 5589320-5 (Version None)
Quarter: 2008Q1

REPORT INFORMATION
  Report Type: 
  Country: None (occurrence: None)
  Receive Date: 20080109
  Receipt Date: 20071226
  Transmission Date: 20080703
  Serious: Yes (Hospitalization)
  Sender: FDA-Public Use
  Company Number: ENT 2007-0245

PATIENT
  Age: 50 Year
  Sex: Female

DRUGS (1)
  1. COMTAN [Suspect]
     Indication: PARKINSON'S DISEASE
     Dosage: 600 (200 MG, 3 IN 1 D); 2 G (2 G, 1 IN 1 D)
     Route: 048
     Dates: start: 20071219, end: 20071219

REACTIONS (6)
  - HYPOTONIA [None]
  - MULTIPLE DRUG OVERDOSE INTENTIONAL [None]
  - MYDRIASIS [None]
  - SKIN DISCOLOURATION [None]
  - SUICIDE ATTEMPT [None]
  - URTICARIA [None]
